FAERS Safety Report 8077123-1 (Version None)
Quarter: 2012Q1

REPORT INFORMATION
  Report Type: 
  Country: None (occurrence: None)
  Receive Date: 20120127
  Receipt Date: 20120120
  Transmission Date: 20120608
  Serious: Yes (Life-Threatening, Hospitalization)
  Sender: FDA-Public Use
  Company Number: PHHY2012CA005231

PATIENT
  Sex: Male

DRUGS (5)
  1. DILTIAZEM HCL [Concomitant]
     Dosage: 18 MG
  2. ANGIOTENSIN CONVERTING ENZYME BLOCKERS [Concomitant]
  3. ATACAND [Concomitant]
     Dosage: 8 MG, UNK
  4. MAVIK [Concomitant]
     Dosage: 1 MG
  5. ALISKIREN [Suspect]
     Indication: HYPERTENSION
     Dosage: 150 MG
     Route: 048
     Dates: start: 20100119, end: 20100209

REACTIONS (4)
  - HEADACHE [None]
  - SUBARACHNOID HAEMORRHAGE [None]
  - NECK PAIN [None]
  - GLYCOSYLATED HAEMOGLOBIN INCREASED [None]
